FAERS Safety Report 6207042-4 (Version None)
Quarter: 2009Q2

REPORT INFORMATION
  Report Type: 
  Country: None (occurrence: None)
  Receive Date: 20090528
  Receipt Date: 20090518
  Transmission Date: 20091009
  Serious: Yes (Other)
  Sender: FDA-Public Use
  Company Number: JP-BAYER-200911584BYL

PATIENT
  Age: 59 Year
  Sex: Male
  Weight: 56 kg

DRUGS (17)
  1. FLUDARA [Suspect]
     Indication: ACUTE MYELOID LEUKAEMIA
     Dosage: TOTAL DAILY DOSE: 40 MG  UNIT DOSE: 50 MG
     Route: 042
     Dates: start: 20081209, end: 20081214
  2. PROGRAF [Suspect]
     Indication: PROPHYLAXIS AGAINST GRAFT VERSUS HOST DISEASE
     Route: 042
     Dates: start: 20081216
  3. PROGRAF [Suspect]
     Route: 048
     Dates: start: 20081216
  4. BUSULFAN [Concomitant]
     Indication: ACUTE MYELOID LEUKAEMIA
     Dosage: AS USED: 188.8 MG
     Route: 042
     Dates: start: 20081211, end: 20081214
  5. CYLOCIDE [Concomitant]
     Indication: ALLOGENIC BONE MARROW TRANSPLANTATION THERAPY
     Dosage: AS USED: 3100 MG
     Route: 042
     Dates: start: 20081209, end: 20081210
  6. CYLOCIDE [Concomitant]
     Dosage: AS USED: 170 MG
     Route: 042
     Dates: start: 20081205, end: 20081207
  7. METHOTREXATE [Concomitant]
     Indication: PROPHYLAXIS AGAINST GRAFT VERSUS HOST DISEASE
     Dosage: AS USED: 11 MG
     Route: 042
     Dates: start: 20081220, end: 20081228
  8. METHOTREXATE [Concomitant]
     Dosage: AS USED: 16 MG
     Route: 042
     Dates: start: 20081218, end: 20081218
  9. LEUCOVORIN CALCIUM [Concomitant]
     Indication: PROPHYLAXIS AGAINST GRAFT VERSUS HOST DISEASE
     Dosage: AS USED: 45 MG
     Route: 042
     Dates: start: 20081220, end: 20081230
  10. LEUCOVORIN CALCIUM [Concomitant]
     Dosage: AS USED: 36 MG
     Route: 042
     Dates: start: 20081219, end: 20081219
  11. ZOVIRAX [Concomitant]
     Indication: INFECTION PROPHYLAXIS
     Dosage: AS USED: 1000 MG
     Route: 048
     Dates: start: 20081209
  12. VFEND [Concomitant]
     Indication: INFECTION PROPHYLAXIS
     Dosage: AS USED: 400 MG
     Route: 048
     Dates: start: 20081209
  13. BAKTAR [Concomitant]
     Indication: INFECTION PROPHYLAXIS
     Dosage: TOTAL DAILY DOSE: 1 DF  UNIT DOSE: 1 DF
     Route: 048
     Dates: start: 20090113
  14. MAXIPIME [Concomitant]
     Indication: INFECTION PROPHYLAXIS
     Dosage: AS USED: 2 G
     Route: 042
     Dates: start: 20081209, end: 20081212
  15. VANCOMYCIN [Concomitant]
     Indication: INFECTION PROPHYLAXIS
     Dosage: AS USED: 2000 MG
     Route: 042
     Dates: start: 20081218, end: 20090105
  16. CONCENTRATED RED CELLS [Concomitant]
     Indication: PACKED RED BLOOD CELL TRANSFUSION
     Route: 042
     Dates: start: 20081209, end: 20090102
  17. PLATELETS [Concomitant]
     Indication: PLATELET TRANSFUSION
     Route: 042
     Dates: start: 20081214, end: 20090112

REACTIONS (7)
  - ACUTE GRAFT VERSUS HOST DISEASE [None]
  - BLOOD CREATININE INCREASED [None]
  - BLOOD UREA INCREASED [None]
  - CYTOMEGALOVIRUS VIRAEMIA [None]
  - HYPERKALAEMIA [None]
  - NAUSEA [None]
  - STOMATITIS [None]
